FAERS Safety Report 7082608-0 (Version None)
Quarter: 2010Q4

REPORT INFORMATION
  Report Type: 
  Country: None (occurrence: None)
  Receive Date: 20101025
  Receipt Date: 20101012
  Transmission Date: 20110411
  Serious: Yes (Hospitalization)
  Sender: FDA-Public Use
  Company Number: NL-1183716

PATIENT
  Age: 59 Year
  Sex: Male

DRUGS (13)
  1. AZOPT [Suspect]
     Indication: GLAUCOMA
     Dosage: 1 GTT BID, OPHTHALMIC
     Route: 047
     Dates: start: 20100925, end: 20100926
  2. ZOLPIDEM [Concomitant]
  3. DIOVAN [Concomitant]
  4. CARVEDILOL [Concomitant]
  5. NOVOLOG [Concomitant]
  6. ACENOCOUMAROL (ACENOCOUMAROL) [Concomitant]
  7. MONO CEDOCARD (ISOSORBIDE MONONITRATE) [Concomitant]
  8. ACETYLSALICYLZUUR (ACETYLSALICYLIC ACID) [Concomitant]
  9. FUROSEMIDE [Concomitant]
  10. LEVEMIR [Concomitant]
  11. AMIODARONE HCL [Concomitant]
  12. LIPITOR [Concomitant]
  13. PANTOPRAZOL (PANTOPRAZOLE SODIUM) [Concomitant]

REACTIONS (1)
  - PALPITATIONS [None]
